FAERS Safety Report 14997402 (Version 1)
Quarter: 2018Q2

REPORT INFORMATION
  Report Type: Spontaneous
  Country: US (occurrence: US)
  Receive Date: 20180518
  Receipt Date: 20180518
  Transmission Date: 20180711
  Serious: No
  Sender: FDA-Public Use
  Company Number: None

PATIENT

DRUGS (4)
  1. HYDROCODONE [Suspect]
     Active Substance: HYDROCODONE
  2. CYMBALTA [Suspect]
     Active Substance: DULOXETINE HYDROCHLORIDE
  3. AMITRIPTYLINE [Suspect]
     Active Substance: AMITRIPTYLINE
  4. OMERPRAZOLE [Suspect]
     Active Substance: OMEPRAZOLE

REACTIONS (8)
  - Memory impairment [None]
  - Vision blurred [None]
  - Dyspnoea [None]
  - Dizziness [None]
  - Chest pain [None]
  - Depression [None]
  - Paraesthesia [None]
  - Balance disorder [None]
